FAERS Safety Report 7559971-7 (Version None)
Quarter: 2011Q2

REPORT INFORMATION
  Report Type: 
  Country: None (occurrence: None)
  Receive Date: 20110621
  Receipt Date: 20110608
  Transmission Date: 20111010
  Serious: Yes (Other)
  Sender: FDA-Public Use
  Company Number: PHHY2011JP30613

PATIENT
  Age: 11 Year
  Sex: Male

DRUGS (2)
  1. GLEEVEC [Suspect]
     Indication: CHROMOSOME ANALYSIS ABNORMAL
     Dosage: 181 MG/M2, QD
     Route: 048
  2. GLEEVEC [Suspect]
     Indication: CHRONIC MYELOID LEUKAEMIA
     Dosage: 272 MG/M2, QD
     Route: 048

REACTIONS (3)
  - ANAEMIA [None]
  - ARTHRALGIA [None]
  - GRAFT VERSUS HOST DISEASE [None]
